FAERS Safety Report 15677778 (Version 1)
Quarter: 2018Q4

REPORT INFORMATION
  Report Type: Spontaneous
  Country: JP (occurrence: JP)
  Receive Date: 20181130
  Receipt Date: 20181130
  Transmission Date: 20190205
  Serious: Yes (Hospitalization, Other)
  Sender: FDA-Public Use
  Company Number: JP-NOVOPROD-631781

PATIENT
  Age: 88 Year
  Sex: Female

DRUGS (7)
  1. VILDAGLIPTIN [Concomitant]
     Active Substance: VILDAGLIPTIN
     Dosage: UNK
     Dates: start: 20130905
  2. NOVOLIN [Suspect]
     Active Substance: INSULIN HUMAN
     Dosage: 12 U, QD
     Route: 058
     Dates: start: 201106, end: 20130820
  3. NOVOLIN R [Suspect]
     Active Substance: INSULIN HUMAN
     Indication: TYPE 2 DIABETES MELLITUS
     Dosage: UNK
     Route: 058
     Dates: start: 20130820, end: 20130822
  4. MIGLITOL. [Concomitant]
     Active Substance: MIGLITOL
     Dosage: UNK
     Dates: start: 20130905
  5. NOVOLIN [Suspect]
     Active Substance: INSULIN HUMAN
     Indication: DIABETES MELLITUS INADEQUATE CONTROL
     Dosage: 13 U, QD
     Route: 058
     Dates: start: 201106
  6. NOVOLIN [Suspect]
     Active Substance: INSULIN HUMAN
     Dosage: 20 U, QD
     Route: 058
     Dates: start: 20130905, end: 20130927
  7. METGLUCO [Concomitant]
     Active Substance: METFORMIN HYDROCHLORIDE
     Dosage: UNK
     Dates: start: 201106

REACTIONS (4)
  - Cerebral haemorrhage [Recovered/Resolved]
  - Hypoglycaemia [Recovered/Resolved]
  - Anti-insulin antibody positive [Unknown]
  - Hyperglycaemia [Recovered/Resolved]

NARRATIVE: CASE EVENT DATE: 20130820
